FAERS Safety Report 14658065 (Version 1)
Quarter: 2018Q1

REPORT INFORMATION
  Report Type: Report from Study
  Country: None (occurrence: BR)
  Receive Date: 20180320
  Receipt Date: 20180320
  Transmission Date: 20180509
  Serious: Yes (Death, Hospitalization, Other)
  Sender: FDA-Public Use
  Company Number: BR-ABBVIE-18K-020-2292802-00

PATIENT
  Age: 70 Year
  Sex: Female
  Weight: 40 kg

DRUGS (1)
  1. HUMIRA [Suspect]
     Active Substance: ADALIMUMAB
     Indication: RHEUMATOID ARTHRITIS
     Route: 058
     Dates: start: 20101214

REACTIONS (8)
  - Respiratory failure [Fatal]
  - Myocardial infarction [Fatal]
  - Pollakiuria [Unknown]
  - Dysuria [Unknown]
  - Cardiogenic shock [Fatal]
  - Hospitalisation [Unknown]
  - Adverse event [Unknown]
  - Hypertension [Unknown]

NARRATIVE: CASE EVENT DATE: 20171215
